FAERS Safety Report 6614292-1 (Version None)
Quarter: 2010Q1

REPORT INFORMATION
  Report Type: 
  Country: None (occurrence: None)
  Receive Date: 20100304
  Receipt Date: 20100224
  Transmission Date: 20100710
  Serious: Yes (Other)
  Sender: FDA-Public Use
  Company Number: US-AMGEN-QUU370347

PATIENT
  Sex: Male
  Weight: 93 kg

DRUGS (20)
  1. EPOGEN [Suspect]
     Indication: DIALYSIS
     Route: 058
     Dates: start: 19950101
  2. ASPIRIN [Concomitant]
     Route: 048
     Dates: start: 20040823
  3. ALLOPURINOL [Concomitant]
     Route: 048
     Dates: start: 20040804
  4. BENAZEPRIL HYDROCHLORIDE [Concomitant]
     Route: 048
     Dates: start: 20071025
  5. CLONIDINE [Concomitant]
     Route: 048
     Dates: start: 20090227
  6. IRON SULFATETHIAMIN COMPOUND TAB [Concomitant]
     Route: 048
     Dates: start: 20060629
  7. FOLIC ACID [Concomitant]
     Route: 048
     Dates: start: 20050621
  8. GEMFIBROZIL [Concomitant]
     Route: 048
     Dates: start: 20060324
  9. GENTAMICIN [Concomitant]
     Route: 061
     Dates: start: 20050927
  10. GLIPIZIDE [Concomitant]
     Route: 048
     Dates: start: 20090602
  11. HYDRALAZINE HCL [Concomitant]
     Route: 048
     Dates: start: 20081120
  12. MAGNESIUM GLUCONATE [Concomitant]
     Route: 048
     Dates: start: 20090429
  13. NORVASC [Concomitant]
     Route: 048
     Dates: start: 20090424
  14. METRONIDAZOLE [Concomitant]
     Route: 061
     Dates: start: 20070222
  15. PHOSLO [Concomitant]
     Route: 048
     Dates: start: 20090330
  16. PRILOSEC [Concomitant]
     Route: 048
     Dates: start: 20090528
  17. HEPARIN [Concomitant]
  18. UNSPECIFIED MEDICATION [Concomitant]
  19. HYDROXYUREA [Concomitant]
  20. LEVOFLOXACIN [Concomitant]
     Route: 048
     Dates: start: 20050927

REACTIONS (14)
  - BILIARY TRACT OPERATION [None]
  - CHEST PAIN [None]
  - CHOLECYSTECTOMY [None]
  - ECZEMA [None]
  - FATIGUE [None]
  - GASTROINTESTINAL DISORDER [None]
  - HEADACHE [None]
  - HYPERPARATHYROIDISM SECONDARY [None]
  - HYPERTENSION [None]
  - IRON DEFICIENCY ANAEMIA [None]
  - NEPHROGENIC ANAEMIA [None]
  - RENAL FAILURE CHRONIC [None]
  - TYPE 2 DIABETES MELLITUS [None]
  - VIRAL INFECTION [None]
